FAERS Safety Report 9049317 (Version 1)
Quarter: 2012Q4

REPORT INFORMATION
  Report Type: Spontaneous
  Country: JP (occurrence: None)
  Receive Date: 20120905
  Receipt Date: 20120905
  Transmission Date: 20130627
  Serious: Yes (Disabling)
  Sender: FDA-Public Use
  Company Number: JP-2012-16136

PATIENT
  Age: 85 Year
  Sex: Female
  Weight: 37 kg

DRUGS (9)
  1. SAMSCA [Suspect]
     Indication: CARDIAC FAILURE
     Dosage: 7.5 Mg milligram(s), qd, Oral
     Route: 048
     Dates: start: 20120814, end: 20120817
  2. THYRADIN (THYROID) [Concomitant]
  3. LASIX (FUROSEMIDE) [Concomitant]
  4. ZYLORIC (ALLOPURINOL) [Concomitant]
  5. MAGNESIUM OXIDE (MAGNESIUM OXIDE) [Concomitant]
  6. ALOSENN (ACHILLEA MILLEFOLIUM, RUBINA TINCTORUM ROOT TINCTURE, SENNA ALEXANDRINA FRUIT, SENNA ALEXANDRINA LEAF, TARAXACUM OFFICINALE) [Concomitant]
  7. FRANDOL S (ISOSORBIDE DINITRATE) [Concomitant]
  8. HANP (CARPERITIDE) [Concomitant]
  9. SOLDEM (MAINTENANCE MEDIUM) [Concomitant]

REACTIONS (2)
  - Cerebral artery embolism [None]
  - Renal impairment [None]
